FAERS Safety Report 9126630 (Version 1)
Quarter: 2013Q1

REPORT INFORMATION
  Report Type: Spontaneous
  Country: GE (occurrence: GE)
  Receive Date: 20130228
  Receipt Date: 20130228
  Transmission Date: 20140127
  Serious: Yes (Other)
  Sender: FDA-Public Use
  Company Number: GE-JNJFOC-20130213818

PATIENT
  Age: 27 Year
  Sex: Male

DRUGS (2)
  1. CYCLOBENZAPRINE HYDROCHLORIDE [Suspect]
     Indication: PRODUCT USED FOR UNKNOWN INDICATION
     Route: 065
  2. PHENAZEPAM [Suspect]
     Indication: PRODUCT USED FOR UNKNOWN INDICATION
     Route: 065

REACTIONS (8)
  - Toxicity to various agents [Unknown]
  - Slow response to stimuli [Unknown]
  - Dysarthria [Unknown]
  - Disorientation [Unknown]
  - Somnolence [Unknown]
  - Balance disorder [Unknown]
  - Heart rate increased [Unknown]
  - Pupillary reflex impaired [Unknown]
